FAERS Safety Report 7229775-3 (Version None)
Quarter: 2011Q1

REPORT INFORMATION
  Report Type: 
  Country: None (occurrence: None)
  Receive Date: 20110117
  Receipt Date: 20110111
  Transmission Date: 20110831
  Serious: Yes (Hospitalization)
  Sender: FDA-Public Use
  Company Number: DK-PFIZER INC-2011007603

PATIENT
  Sex: Female

DRUGS (3)
  1. MINRIN [Concomitant]
     Dosage: 3.75 UG, 1X/DAY
     Route: 050
     Dates: start: 19921123
  2. HYDROCORTISON [Concomitant]
     Dosage: 30 MG, 1X/DAY
     Route: 048
     Dates: start: 19921123
  3. SOMATROPIN [Suspect]
     Indication: HYPOPITUITARISM
     Dosage: 0.1 MG, 1X/DAY
     Dates: start: 19960910

REACTIONS (5)
  - SYNCOPE [None]
  - BLOOD SODIUM DECREASED [None]
  - NAUSEA [None]
  - DISCOMFORT [None]
  - COUGH [None]
